FAERS Safety Report 10456917 (Version 1)
Quarter: 2014Q3

REPORT INFORMATION
  Report Type: Spontaneous
  Country: US (occurrence: None)
  Receive Date: 20140828
  Receipt Date: 20140828
  Transmission Date: 20150326
  Serious: Yes (Other)
  Sender: FDA-Public Use
  Company Number: PHEH2014US003034

PATIENT
  Age: 41 Year
  Sex: Female

DRUGS (5)
  1. SANDOSTATIN LAR DEPOT [Suspect]
     Active Substance: OCTREOTIDE ACETATE
     Indication: INSULIN-LIKE GROWTH FACTOR
     Route: 030
     Dates: start: 2003
  2. SANDOSTATIN LAR DEPOT [Suspect]
     Active Substance: OCTREOTIDE ACETATE
     Indication: ACROMEGALY
     Route: 030
     Dates: start: 2003
  3. CABERGOLINE (CABERGOLINE) [Concomitant]
  4. SANDOSTATIN [Suspect]
     Active Substance: OCTREOTIDE ACETATE
     Indication: ACROMEGALY
     Dosage: UNK, UNK, ONCE IN A MONTH, SUBCUTANEOUS
     Route: 058
     Dates: start: 2003, end: 2003
  5. SANDOSTATIN [Suspect]
     Active Substance: OCTREOTIDE ACETATE
     Indication: INSULIN-LIKE GROWTH FACTOR
     Dosage: UNK, UNK, ONCE IN A MONTH, SUBCUTANEOUS
     Route: 058
     Dates: start: 2003, end: 2003

REACTIONS (7)
  - Hypoglycaemia [None]
  - Memory impairment [None]
  - Loss of consciousness [None]
  - Diabetes mellitus [None]
  - Somnolence [None]
  - Disturbance in attention [None]
  - Pain [None]

NARRATIVE: CASE EVENT DATE: 2004
